FAERS Safety Report 8297158-3 (Version None)
Quarter: 2012Q2

REPORT INFORMATION
  Report Type: 
  Country: None (occurrence: None)
  Receive Date: 20120419
  Receipt Date: 20120416
  Transmission Date: 20120825
  Serious: No
  Sender: FDA-Public Use
  Company Number: US-PFIZER INC-2012094239

PATIENT
  Sex: Female
  Weight: 55.782 kg

DRUGS (2)
  1. NORTRIPTYLINE [Concomitant]
     Indication: HEADACHE
     Dosage: 50 MG, DAILY
  2. PREMPRO [Suspect]
     Indication: MENOPAUSE
     Dosage: 0.625/2.5 MG, DAILY

REACTIONS (4)
  - MOOD ALTERED [None]
  - HYPERHIDROSIS [None]
  - FEELING ABNORMAL [None]
  - FEELING HOT [None]
